FAERS Safety Report 6638952-1 (Version None)
Quarter: 2010Q1

REPORT INFORMATION
  Report Type: 
  Country: None (occurrence: None)
  Receive Date: 20100317
  Receipt Date: 20100303
  Transmission Date: 20100710
  Serious: Yes (Hospitalization)
  Sender: FDA-Public Use
  Company Number: GB-WATSON-2010-03082

PATIENT

DRUGS (4)
  1. ALBUTEROL SULFATE (WATSON LABORATORIES) [Suspect]
     Indication: DYSPNOEA
     Dosage: 5 MG, UNK
     Route: 065
     Dates: start: 20090713, end: 20090713
  2. ALBUTEROL SULFATE (WATSON LABORATORIES) [Suspect]
     Dosage: 2 1/2 MG, UNK
     Dates: start: 20090720
  3. ANASTROZOLE [Concomitant]
     Indication: BREAST CANCER
     Dosage: 1 MG, DAILY
     Route: 048
  4. OMEPRAZOLE [Concomitant]
     Indication: GASTROOESOPHAGEAL REFLUX DISEASE
     Dosage: 20 MG, DAILY
     Route: 048

REACTIONS (3)
  - CHEST DISCOMFORT [None]
  - EAR PAIN [None]
  - PALPITATIONS [None]
